FAERS Safety Report 17893970 (Version 1)
Quarter: 2020Q2

REPORT INFORMATION
  Report Type: Other
  Country: US (occurrence: US)
  Receive Date: 20200615
  Receipt Date: 20200615
  Transmission Date: 20200714
  Serious: Yes (Other)
  Sender: FDA-Public Use
  Company Number: US-INTERCEPT-PM2020001133

PATIENT
  Age: 70 Year
  Sex: Female
  Weight: 57 kg

DRUGS (11)
  1. FAMOTIDINE. [Concomitant]
     Active Substance: FAMOTIDINE
     Dosage: 40 MG, BID
  2. AMOXICILLIN. [Concomitant]
     Active Substance: AMOXICILLIN
     Dosage: 500 MG, QID
     Route: 048
  3. VITAMIN D3 [Concomitant]
     Active Substance: CHOLECALCIFEROL
     Dosage: UNK
     Route: 048
  4. PROBIOTIC 10 [Concomitant]
     Active Substance: DIETARY SUPPLEMENT\PROBIOTICS
     Route: 048
  5. URSODIOL. [Concomitant]
     Active Substance: URSODIOL
     Dosage: 300 MG, QID
     Dates: start: 201304
  6. METHOTREXATE SODIUM. [Concomitant]
     Active Substance: METHOTREXATE SODIUM
  7. OCALIVA [Suspect]
     Active Substance: OBETICHOLIC ACID
     Indication: PRIMARY BILIARY CHOLANGITIS
     Dosage: 5 MG, QD
     Route: 048
     Dates: start: 201610
  8. ADVAIR HFA [Concomitant]
     Active Substance: FLUTICASONE PROPIONATE\SALMETEROL XINAFOATE
  9. VITAMIN C [Concomitant]
     Active Substance: ASCORBIC ACID
     Dosage: 500 MG, QD
     Route: 048
  10. FOLIC ACID. [Concomitant]
     Active Substance: FOLIC ACID
     Dosage: 1 MG, QD
     Route: 048
  11. YUVAFEM [Concomitant]
     Active Substance: ESTRADIOL HEMIHYDRATE

REACTIONS (26)
  - Polypectomy [Recovered/Resolved]
  - Blood urea nitrogen/creatinine ratio increased [Unknown]
  - Back pain [Not Recovered/Not Resolved]
  - Flatulence [Unknown]
  - Brunner^s gland hyperplasia [Unknown]
  - Blood alkaline phosphatase increased [Unknown]
  - Fatigue [Not Recovered/Not Resolved]
  - Abdominal pain lower [Not Recovered/Not Resolved]
  - Blood potassium increased [Unknown]
  - Cough [Unknown]
  - Oedema peripheral [Not Recovered/Not Resolved]
  - Anxiety [Unknown]
  - Blood cholesterol increased [Unknown]
  - Gastrectomy [Recovered/Resolved]
  - Low density lipoprotein increased [Unknown]
  - Blood glucose increased [Unknown]
  - Pollakiuria [Unknown]
  - Gastric polyps [Unknown]
  - Change of bowel habit [Not Recovered/Not Resolved]
  - Gastric ulcer [Unknown]
  - Nodule [Unknown]
  - Splenectomy [Recovered/Resolved]
  - Albumin globulin ratio decreased [Unknown]
  - Nocturia [Not Recovered/Not Resolved]
  - Frequent bowel movements [Recovered/Resolved]
  - Blood creatine decreased [Unknown]

NARRATIVE: CASE EVENT DATE: 20161011
